FAERS Safety Report 18718136 (Version 1)
Quarter: 2021Q1

REPORT INFORMATION
  Report Type: Report from Study
  Country: US (occurrence: US)
  Receive Date: 20210108
  Receipt Date: 20210108
  Transmission Date: 20210419
  Serious: Yes (Other)
  Sender: FDA-Public Use
  Company Number: US-BIOVITRUM-2021US0194

PATIENT
  Age: 43 Year
  Sex: Female

DRUGS (1)
  1. KINERET [Suspect]
     Active Substance: ANAKINRA
     Indication: PERICARDITIS
     Route: 058
     Dates: start: 20200917

REACTIONS (6)
  - Off label use [Unknown]
  - Hypotension [Unknown]
  - Ageusia [Unknown]
  - Suspected COVID-19 [Unknown]
  - Product dose omission issue [Unknown]
  - Anosmia [Unknown]

NARRATIVE: CASE EVENT DATE: 20200917
